FAERS Safety Report 24265356 (Version 1)
Quarter: 2024Q3

REPORT INFORMATION
  Report Type: Spontaneous
  Country: ES (occurrence: ES)
  Receive Date: 20240829
  Receipt Date: 20240829
  Transmission Date: 20241017
  Serious: Yes (Hospitalization, Other)
  Sender: PHARMACEUTICAL ASSOC
  Company Number: ES-PAIPHARMA-2024-ES-000093

PATIENT
  Age: 51 Year
  Sex: Male

DRUGS (1)
  1. CEFUROXIME [Suspect]
     Active Substance: CEFUROXIME
     Indication: Cystitis
     Dosage: 250 MG EVERY 12 HOURS

REACTIONS (1)
  - Kounis syndrome [Recovered/Resolved]
